FAERS Safety Report 9459344 (Version 1)
Quarter: 2013Q3

REPORT INFORMATION
  Report Type: Spontaneous
  Country: US (occurrence: US)
  Receive Date: 20130815
  Receipt Date: 20130815
  Transmission Date: 20140515
  Serious: No
  Sender: FDA-Public Use
  Company Number: US-009507513-1308USA004767

PATIENT
  Sex: Female

DRUGS (3)
  1. COZAAR [Suspect]
     Indication: HYPERTENSION
     Dosage: 50 MG/UNSPECIFIED
     Route: 048
     Dates: end: 20130807
  2. VITAMINS (UNSPECIFIED) [Concomitant]
  3. OMEGA-3 MARINE TRIGLYCERIDES [Concomitant]

REACTIONS (1)
  - Drug ineffective [Not Recovered/Not Resolved]
